FAERS Safety Report 21415381 (Version 2)
Quarter: 2022Q4

REPORT INFORMATION
  Report Type: Spontaneous
  Country: US (occurrence: US)
  Receive Date: 20221006
  Receipt Date: 20221011
  Transmission Date: 20230112
  Serious: Yes (Other)
  Sender: FDA-Public Use
  Company Number: US-NOVARTISTESTPH-NVSC2022US222961

PATIENT
  Sex: Female
  Weight: 86.18 kg

DRUGS (3)
  1. LETROZOLE [Suspect]
     Active Substance: LETROZOLE
     Indication: Breast cancer
     Dosage: UNK
     Route: 065
     Dates: start: 2009
  2. LETROZOLE [Suspect]
     Active Substance: LETROZOLE
     Dosage: UNK
     Route: 065
     Dates: start: 2021, end: 2021
  3. IBRANCE [Suspect]
     Active Substance: PALBOCICLIB
     Indication: Breast cancer metastatic
     Dosage: 1 MG, QD (WITH WATER)
     Route: 065
     Dates: start: 2021, end: 2021

REACTIONS (16)
  - Metastases to lung [Unknown]
  - Metastases to lymph nodes [Unknown]
  - Metastases to bone [Unknown]
  - Malignant neoplasm progression [Unknown]
  - Breast cancer [Unknown]
  - Abdominal discomfort [Not Recovered/Not Resolved]
  - Neoplasm progression [Unknown]
  - Neoplasm [Recovered/Resolved]
  - Lymphoedema [Recovering/Resolving]
  - Movement disorder [Not Recovered/Not Resolved]
  - Neuralgia [Recovered/Resolved]
  - Pain in extremity [Recovering/Resolving]
  - Nerve injury [Unknown]
  - Urticaria [Unknown]
  - Nausea [Unknown]
  - Hypersensitivity [Recovered/Resolved]

NARRATIVE: CASE EVENT DATE: 20210101
